FAERS Safety Report 5803030-8 (Version None)
Quarter: 2008Q3

REPORT INFORMATION
  Report Type: 
  Country: None (occurrence: None)
  Receive Date: 20080708
  Receipt Date: 20080701
  Transmission Date: 20090109
  Serious: Yes (Hospitalization)
  Sender: FDA-Public Use
  Company Number: US-JNJFOC-20080401491

PATIENT
  Sex: Male
  Weight: 78.02 kg

DRUGS (8)
  1. LEVAQUIN [Suspect]
     Indication: UPPER RESPIRATORY TRACT INFECTION
     Route: 048
  2. ALPRAZOLAM [Concomitant]
  3. DILTIAZEM HCL [Concomitant]
  4. FOLIC ACID [Concomitant]
  5. DIPHENOXYLATE HCL + ATROPINE SULFATE [Concomitant]
  6. MERCAPTOPURINE [Concomitant]
  7. PROPECIA [Concomitant]
  8. VIAGRA [Concomitant]

REACTIONS (2)
  - CARDIAC FAILURE [None]
  - PULMONARY HYPERTENSION [None]
